FAERS Safety Report 15183008 (Version 1)
Quarter: 2018Q3

REPORT INFORMATION
  Report Type: Spontaneous
  Country: US (occurrence: US)
  Receive Date: 20180625
  Receipt Date: 20180625
  Transmission Date: 20181010
  Serious: Yes (Hospitalization, Other)
  Sender: FDA-Public Use
  Company Number: None

PATIENT
  Age: 71 Year
  Sex: Male
  Weight: 70.31 kg

DRUGS (1)
  1. APIXABAN [Suspect]
     Active Substance: APIXABAN
     Indication: ATRIAL FIBRILLATION
     Route: 048
     Dates: start: 20180118, end: 20180130

REACTIONS (9)
  - Haematocrit decreased [None]
  - Haematemesis [None]
  - Gastritis [None]
  - Gastric haemorrhage [None]
  - Blood urea increased [None]
  - Dyspepsia [None]
  - Haemoglobin decreased [None]
  - Blood creatinine increased [None]
  - Platelet count decreased [None]

NARRATIVE: CASE EVENT DATE: 20180130
